FAERS Safety Report 6722290-2 (Version None)
Quarter: 2010Q2

REPORT INFORMATION
  Report Type: 
  Country: None (occurrence: None)
  Receive Date: 20100512
  Receipt Date: 20100503
  Transmission Date: 20101027
  Serious: Yes (Death, Other)
  Sender: FDA-Public Use
  Company Number: FR-BAYER-200911053GPV

PATIENT
  Age: 64 Year
  Sex: Female
  Weight: 84 kg

DRUGS (2)
  1. NEXAVAR [Suspect]
     Indication: ANGIOSARCOMA
     Route: 048
     Dates: start: 20081219, end: 20081229
  2. NEXAVAR [Suspect]
     Dates: start: 20090101, end: 20090106

REACTIONS (4)
  - ANGIOSARCOMA METASTATIC [None]
  - HAEMORRHAGE [None]
  - RASH PAPULAR [None]
  - SKIN NECROSIS [None]
